FAERS Safety Report 10381973 (Version 2)
Quarter: 2015Q1

REPORT INFORMATION
  Report Type: Report from Study
  Country: CA (occurrence: CA)
  Receive Date: 20140813
  Receipt Date: 20150113
  Transmission Date: 20150720
  Serious: Yes (Other)
  Sender: FDA-Public Use
  Company Number: CA-BRISTOL-MYERS SQUIBB COMPANY-21291000

PATIENT
  Sex: Female

DRUGS (19)
  1. ABATACEPT [Suspect]
     Active Substance: ABATACEPT
     Indication: RHEUMATOID ARTHRITIS
     Dosage: 750 MG, Q4WK
     Route: 042
     Dates: start: 20111210
  2. METHOTREXATE [Concomitant]
     Active Substance: METHOTREXATE
  3. SYNTHROID [Concomitant]
     Active Substance: LEVOTHYROXINE SODIUM
  4. MULTI VITAMIN [Concomitant]
     Active Substance: VITAMINS
  5. ETIDRONATE SODIUM [Concomitant]
  6. NIFEDIPINE. [Concomitant]
     Active Substance: NIFEDIPINE
  7. I RON [Concomitant]
  8. DOMPERIDONE [Concomitant]
     Active Substance: DOMPERIDONE
  9. FOLIC ACID. [Concomitant]
     Active Substance: FOLIC ACID
  10. RIVAROXABAN [Concomitant]
     Active Substance: RIVAROXABAN
  11. HYDROXYCHLOROQUINE [Concomitant]
     Active Substance: HYDROXYCHLOROQUINE
  12. PANTOPRAZOLE [Concomitant]
     Active Substance: PANTOPRAZOLE SODIUM
  13. ASPIRIN. [Concomitant]
     Active Substance: ASPIRIN
  14. VITAMIN D [Concomitant]
     Active Substance: CHOLECALCIFEROL
  15. ATORVASTATIN [Concomitant]
     Active Substance: ATORVASTATIN
  16. TYLENOL [Concomitant]
     Active Substance: ACETAMINOPHEN
  17. METOPROLOL [Concomitant]
     Active Substance: METOPROLOL
  18. BISOPROLOL [Concomitant]
     Active Substance: BISOPROLOL
  19. PREDNISONE. [Concomitant]
     Active Substance: PREDNISONE

REACTIONS (1)
  - Atrial fibrillation [Unknown]
